FAERS Safety Report 6515937-7 (Version None)
Quarter: 2009Q4

REPORT INFORMATION
  Report Type: 
  Country: None (occurrence: None)
  Receive Date: 20091223
  Receipt Date: 20090203
  Transmission Date: 20100525
  Serious: Yes (Other)
  Sender: FDA-Public Use
  Company Number: US-ABBOTT-08P-163-0476955-00

PATIENT
  Sex: Male
  Weight: 90.346 kg

DRUGS (2)
  1. LUPRON DEPOT [Suspect]
     Indication: PROSTATE CANCER
     Route: 030
     Dates: start: 20080207, end: 20080529
  2. LUPRON DEPOT [Suspect]
     Indication: HORMONE THERAPY

REACTIONS (1)
  - ATRIAL TACHYCARDIA [None]
